FAERS Safety Report 17822467 (Version 2)
Quarter: 2020Q2

REPORT INFORMATION
  Report Type: Report from Study
  Country: EG (occurrence: EG)
  Receive Date: 20200526
  Receipt Date: 20200611
  Transmission Date: 20200714
  Serious: Yes (Death, Hospitalization, Other)
  Sender: FDA-Public Use
  Company Number: EG-REGENERON PHARMACEUTICALS, INC.-2020-39215

PATIENT

DRUGS (10)
  1. EYLEA [Suspect]
     Active Substance: AFLIBERCEPT
     Indication: DIABETIC RETINAL OEDEMA
     Dosage: PATIENT RECEIVED A TOTAL OF 10 INJECTIONS.
     Route: 031
  2. PEPZOL [OMEPRAZOLE] [Concomitant]
     Indication: GASTRIC DISORDER
     Dosage: UNK
     Dates: start: 201812, end: 202002
  3. PEPZOL [OMEPRAZOLE] [Concomitant]
     Dosage: 1 DF, ONCE; RIGHT EYE - LAST INJECTION RECEIVED
     Dates: start: 20191223, end: 20191223
  4. CARDURA [Concomitant]
     Active Substance: DOXAZOSIN MESYLATE
     Indication: HYPERTENSION
     Dates: start: 201812, end: 202002
  5. PLAVIX [Concomitant]
     Active Substance: CLOPIDOGREL BISULFATE
     Indication: PRODUCT USED FOR UNKNOWN INDICATION
     Dates: start: 201812, end: 202002
  6. EYLEA [Suspect]
     Active Substance: AFLIBERCEPT
     Dosage: LAST INJECTION. RIGHT EYE.
     Dates: start: 20191223, end: 20191223
  7. TAREG [Concomitant]
     Active Substance: VALSARTAN
     Indication: HYPERTENSION
     Dates: start: 201812, end: 202002
  8. ASPIRIN PROTECT [Concomitant]
     Active Substance: ASPIRIN
     Indication: PRODUCT USED FOR UNKNOWN INDICATION
     Dates: start: 201812, end: 202002
  9. FEROGLOBIN [COPPER;CYANOCOBALAMIN;FERROUS ASCORBATE;FOLIC ACID;PYR [Concomitant]
     Indication: ANAEMIA
     Dates: start: 201812
  10. CRESTOR [Concomitant]
     Active Substance: ROSUVASTATIN CALCIUM
     Indication: HYPERLIPIDAEMIA
     Dates: end: 202002

REACTIONS (6)
  - Fall [Unknown]
  - Anaemia [Unknown]
  - Septic shock [Fatal]
  - Postoperative wound infection [Unknown]
  - Coronary artery disease [Recovered/Resolved with Sequelae]
  - Lower limb fracture [Unknown]

NARRATIVE: CASE EVENT DATE: 201812
